FAERS Safety Report 8943473 (Version 1)
Quarter: 2012Q4

REPORT INFORMATION
  Report Type: 
  Country: BR (occurrence: BR)
  Receive Date: 20121203
  Receipt Date: 20121203
  Transmission Date: 20130627
  Serious: Yes (Other)
  Sender: FDA-Public Use
  Company Number: PHHY2012BR109715

PATIENT
  Sex: Male

DRUGS (1)
  1. AMINOPHYLLINE SANDOZ [Suspect]
     Dosage: 50 mg, BID (morning and night)
     Route: 048

REACTIONS (2)
  - Drug dependence [Unknown]
  - Wrong technique in drug usage process [Unknown]
